FAERS Safety Report 17402929 (Version 3)
Quarter: 2021Q1

REPORT INFORMATION
  Report Type: Spontaneous
  Country: MX (occurrence: MX)
  Receive Date: 20200211
  Receipt Date: 20210129
  Transmission Date: 20210419
  Serious: Yes (Death)
  Sender: FDA-Public Use
  Company Number: MX-NOVOPROD-711914

PATIENT
  Age: 92 Year
  Sex: Female
  Weight: 45 kg

DRUGS (1)
  1. TRESIBA [Suspect]
     Active Substance: INSULIN DEGLUDEC
     Indication: DIABETES MELLITUS
     Dosage: 30 IU, QD (IN MORNING)
     Route: 058

REACTIONS (3)
  - Blood glucose increased [Unknown]
  - Pulmonary infarction [Fatal]
  - Cerebrovascular accident [Fatal]

NARRATIVE: CASE EVENT DATE: 20200204
